FAERS Safety Report 5709178-0 (Version None)
Quarter: 2008Q2

REPORT INFORMATION
  Report Type: 
  Country: None (occurrence: None)
  Receive Date: 20080418
  Receipt Date: 20080410
  Transmission Date: 20081010
  Serious: Yes (Other)
  Sender: FDA-Public Use
  Company Number: US-ASTRAZENECA-2008UW07340

PATIENT
  Age: 64 Year
  Sex: Female
  Weight: 68 kg

DRUGS (2)
  1. PRILOSEC [Suspect]
     Indication: REFLUX OESOPHAGITIS
     Dates: end: 20050101
  2. ACCUPRIL [Concomitant]

REACTIONS (1)
  - BARRETT'S OESOPHAGUS [None]
